FAERS Safety Report 5266256-0 (Version None)
Quarter: 2007Q1

REPORT INFORMATION
  Report Type: 
  Country: None (occurrence: None)
  Receive Date: 20070315
  Receipt Date: 20070312
  Transmission Date: 20070707
  Serious: Yes (Other)
  Sender: FDA-Public Use
  Company Number: DE-GLAXOSMITHKLINE-D0052577A

PATIENT

DRUGS (1)
  1. TELZIR [Suspect]
     Route: 065

REACTIONS (2)
  - AUTOIMMUNE THYROIDITIS [None]
  - HYPOTHYROIDISM [None]
